FAERS Safety Report 6450357-5 (Version None)
Quarter: 2009Q4

REPORT INFORMATION
  Report Type: 
  Country: None (occurrence: None)
  Receive Date: 20091123
  Receipt Date: 20091116
  Transmission Date: 20100525
  Serious: Yes (Death)
  Sender: FDA-Public Use
  Company Number: ES-ROCHE-669103

PATIENT

DRUGS (2)
  1. CEFTRIAXONE [Suspect]
     Dosage: DOSE RANGED BETWEEN 2 AND 4 G/ DAY
     Route: 065
  2. AMOXICILLIN [Suspect]
     Dosage: DOSE RANGED BETWEEN 8 AND 16 G/ DAY
     Route: 065

REACTIONS (1)
  - HAEMORRHAGIC STROKE [None]
